FAERS Safety Report 20819476 (Version 1)
Quarter: 2022Q2

REPORT INFORMATION
  Report Type: Spontaneous
  Country: FR (occurrence: FR)
  Receive Date: 20220512
  Receipt Date: 20220512
  Transmission Date: 20220720
  Serious: Yes (Hospitalization, Other)
  Sender: FDA-Public Use
  Company Number: FR-SA-SAC20210608000191

PATIENT
  Age: 45 Year
  Sex: Female

DRUGS (5)
  1. XANAX [Suspect]
     Active Substance: ALPRAZOLAM
     Indication: Stress
     Dosage: 1  IN THE MORNING AND 1 IN THE EVENING
     Dates: start: 2005
  2. XANAX [Suspect]
     Active Substance: ALPRAZOLAM
     Indication: Anxiety
  3. LOPRAZOLAM [Suspect]
     Active Substance: LOPRAZOLAM
     Indication: Insomnia
     Dosage: UNK
     Route: 065
  4. QUETIAPINE [Concomitant]
     Active Substance: QUETIAPINE
     Dosage: UNK
     Dates: start: 20210614
  5. EFFEXOR [Concomitant]
     Active Substance: VENLAFAXINE HYDROCHLORIDE
     Indication: Blood pressure management
     Dosage: UNK
     Route: 065

REACTIONS (10)
  - Dizziness [Unknown]
  - Suicidal ideation [Unknown]
  - Eye pain [Not Recovered/Not Resolved]
  - Contraindicated product administered [Unknown]
  - Myalgia [Unknown]
  - Confusional state [Unknown]
  - Blood pressure abnormal [Unknown]
  - Fatigue [Unknown]
  - Nightmare [Unknown]
  - Somnolence [Unknown]
